FAERS Safety Report 8820009 (Version 1)
Quarter: 2012Q4

REPORT INFORMATION
  Report Type: 
  Country: US (occurrence: US)
  Receive Date: 20121001
  Receipt Date: 20121001
  Transmission Date: 20130627
  Serious: No
  Sender: FDA-Public Use
  Company Number: US-VERTEX PHARMACEUTICAL INC.-2012-020459

PATIENT
  Sex: Female
  Weight: 76 kg

DRUGS (4)
  1. INCIVEK [Suspect]
     Indication: HEPATITIS C
     Dosage: UNK
     Route: 048
     Dates: start: 2011, end: 20120413
  2. PEGASYS [Concomitant]
     Indication: HEPATITIS C
     Dosage: UNK
     Dates: start: 2011, end: 20120413
  3. RIBAVIRIN [Concomitant]
     Indication: HEPATITIS C
     Dosage: UNK
     Dates: start: 2011, end: 20120413
  4. METOPROLOL [Concomitant]
     Indication: HYPERTENSION
     Dosage: 25 mg, UNK

REACTIONS (2)
  - Teeth brittle [Unknown]
  - Alopecia [Unknown]
